FAERS Safety Report 21511828 (Version 1)
Quarter: 2022Q4

REPORT INFORMATION
  Report Type: Spontaneous
  Country: CN (occurrence: None)
  Receive Date: 20221027
  Receipt Date: 20221027
  Transmission Date: 20230112
  Serious: Yes (Other)
  Sender: FDA-Public Use
  Company Number: CN-ROCHE-3206533

PATIENT
  Age: 45 Year
  Sex: Female
  Weight: 45 kg

DRUGS (11)
  1. XELODA [Suspect]
     Active Substance: CAPECITABINE
     Indication: Gastric cancer
     Route: 048
     Dates: start: 20220804, end: 20220915
  2. XELODA [Suspect]
     Active Substance: CAPECITABINE
     Dosage: 1.5G TWICE A DAY D1-D14
     Route: 048
     Dates: start: 20221015
  3. APATINIB [Suspect]
     Active Substance: APATINIB
     Indication: Gastric cancer
     Dosage: THREE CYCLES
     Route: 048
     Dates: start: 20220804, end: 20220915
  4. APATINIB [Suspect]
     Active Substance: APATINIB
     Route: 048
     Dates: start: 20221015
  5. SINTILIMAB [Concomitant]
     Active Substance: SINTILIMAB
     Indication: Gastric cancer
     Route: 041
     Dates: start: 20220623, end: 20220714
  6. SINTILIMAB [Concomitant]
     Active Substance: SINTILIMAB
     Dosage: THREE CYCLES
     Route: 041
     Dates: start: 20220804, end: 20220915
  7. SINTILIMAB [Concomitant]
     Active Substance: SINTILIMAB
     Route: 041
     Dates: start: 20221015
  8. OXALIPLATIN [Concomitant]
     Active Substance: OXALIPLATIN
     Indication: Gastric cancer
     Route: 041
     Dates: start: 20220623, end: 20220714
  9. OXALIPLATIN [Concomitant]
     Active Substance: OXALIPLATIN
     Route: 041
     Dates: start: 20220804, end: 20220915
  10. OXALIPLATIN [Concomitant]
     Active Substance: OXALIPLATIN
     Route: 041
     Dates: start: 20221015
  11. TEGAFUR [Concomitant]
     Active Substance: TEGAFUR
     Indication: Gastric cancer
     Dosage: 60MG TWICE A DAY D1-D14,
     Route: 065
     Dates: start: 20220623, end: 20220714

REACTIONS (6)
  - White blood cell count decreased [Unknown]
  - Hyperthyroidism [Unknown]
  - Mouth haemorrhage [Recovering/Resolving]
  - Rash [Unknown]
  - Myelosuppression [Unknown]
  - Gingival bleeding [Unknown]

NARRATIVE: CASE EVENT DATE: 20221007
